FAERS Safety Report 20532938 (Version 8)
Quarter: 2024Q3

REPORT INFORMATION
  Report Type: Spontaneous
  Country: US (occurrence: US)
  Receive Date: 20220301
  Receipt Date: 20240725
  Transmission Date: 20241017
  Serious: Yes (Hospitalization, Disabling, Other)
  Sender: ORGANON
  Company Number: US-ORGANON-O2202USA002336

PATIENT
  Sex: Female
  Weight: 95.692 kg

DRUGS (7)
  1. SINGULAIR [Suspect]
     Active Substance: MONTELUKAST SODIUM
     Indication: Asthma
     Dosage: DIRECTION: 1 EVERY DAY/TAKE ONE TABLET BY MOUTH EVERY DAY
     Route: 048
     Dates: start: 2000
  2. SINGULAIR [Suspect]
     Active Substance: MONTELUKAST SODIUM
     Dosage: TAKE 1 TAB (10 MG TOTAL) BY MOUTH EVERY EVENING.
     Route: 048
     Dates: start: 20201123, end: 20210728
  3. PIROXICAM [Concomitant]
     Active Substance: PIROXICAM
     Dosage: 50 MILLIGRAM, QD
  4. DEPAKOTE ER [Concomitant]
     Active Substance: DIVALPROEX SODIUM
     Dosage: 500 MILLIGRAM, QHS
  5. TOPAMAX [Concomitant]
     Active Substance: TOPIRAMATE
     Dosage: 100 MILLIGRAM, QD
  6. BUSPAR [Concomitant]
     Active Substance: BUSPIRONE HYDROCHLORIDE
     Dosage: 10 MILLIGRAM, QD
  7. VYVANSE [Concomitant]
     Active Substance: LISDEXAMFETAMINE DIMESYLATE
     Dosage: 30 MILLIGRAM

REACTIONS (37)
  - Major depression [Recovered/Resolved]
  - Generalised anxiety disorder [Recovered/Resolved]
  - Suicidal ideation [Recovered/Resolved]
  - Panic disorder [Recovered/Resolved]
  - Agoraphobia [Recovered/Resolved]
  - Bipolar I disorder [Not Recovered/Not Resolved]
  - Neuropsychological symptoms [Not Recovered/Not Resolved]
  - Suicide attempt [Recovered/Resolved]
  - Tremor [Recovered/Resolved]
  - Suicidal ideation [Recovered/Resolved]
  - Uterine dilation and curettage [Unknown]
  - Abnormal behaviour [Not Recovered/Not Resolved]
  - Mood swings [Not Recovered/Not Resolved]
  - Tearfulness [Unknown]
  - Appetite disorder [Unknown]
  - Depression [Unknown]
  - Asthenia [Unknown]
  - Tachyphrenia [Unknown]
  - Partner stress [Unknown]
  - Panic attack [Unknown]
  - Social problem [Unknown]
  - Loss of personal independence in daily activities [Unknown]
  - Lethargy [Unknown]
  - Binge eating [Unknown]
  - Weight increased [Recovering/Resolving]
  - Mania [Unknown]
  - Insomnia [Unknown]
  - Movement disorder [Unknown]
  - Disturbance in attention [Unknown]
  - Hyperphagia [Unknown]
  - Feeling guilty [Unknown]
  - Logorrhoea [Unknown]
  - Psychomotor hyperactivity [Unknown]
  - Polydipsia [Unknown]
  - Overconfidence [Unknown]
  - Feeling abnormal [Unknown]
  - Back pain [Unknown]

NARRATIVE: CASE EVENT DATE: 20000101
